FAERS Safety Report 5220078-5 (Version None)
Quarter: 2006Q4

REPORT INFORMATION
  Report Type: 
  Country: None (occurrence: None)
  Receive Date: 20061121
  Receipt Date: 20060920
  Transmission Date: 20070319
  Serious: No
  Sender: FDA-Public Use
  Company Number: TPA2006A01620

PATIENT
  Age: 57 Year
  Sex: Female
  Weight: 81.6475 kg

DRUGS (8)
  1. ROZEREM [Suspect]
     Indication: INSOMNIA
     Dosage: 8 MG, QHS, PER ORAL
     Route: 048
     Dates: start: 20060817, end: 20060819
  2. ZETIA [Concomitant]
  3. HYZAAR [Concomitant]
  4. ATIVAN [Concomitant]
  5. WELLBUTRIN [Concomitant]
  6. ZELNORM [Concomitant]
  7. FEMRING (ESTRADIOL) [Concomitant]
  8. AMBIEN CR (ZOLPIDEM TARTRATE) [Concomitant]

REACTIONS (1)
  - DRUG INEFFECTIVE [None]
